FAERS Safety Report 20853481 (Version 1)
Quarter: 2022Q2

REPORT INFORMATION
  Report Type: Spontaneous
  Country: CN (occurrence: CN)
  Receive Date: 20220520
  Receipt Date: 20220520
  Transmission Date: 20220721
  Serious: Yes (Hospitalization)
  Sender: FDA-Public Use
  Company Number: CN-PFIZER INC-202200713750

PATIENT
  Age: 16 Year
  Sex: Male

DRUGS (3)
  1. METHOTREXATE [Suspect]
     Active Substance: METHOTREXATE
     Indication: Chemotherapy
     Dosage: 12 G, 1X/DAY
     Route: 041
     Dates: start: 20220420, end: 20220420
  2. METHOTREXATE [Suspect]
     Active Substance: METHOTREXATE
     Indication: Bone sarcoma
  3. DEXTROSE [Concomitant]
     Active Substance: DEXTROSE
     Dosage: 400 ML, 1X/DAY
     Route: 041
     Dates: start: 20220420, end: 20220420

REACTIONS (2)
  - Myelosuppression [Recovering/Resolving]
  - Condition aggravated [Unknown]

NARRATIVE: CASE EVENT DATE: 20220503
